FAERS Safety Report 25372228 (Version 1)
Quarter: 2025Q2

REPORT INFORMATION
  Report Type: Report from Study
  Country: US (occurrence: US)
  Receive Date: 20250529
  Receipt Date: 20250529
  Transmission Date: 20250717
  Serious: No
  Sender: ACADIA PHARMACEUTICALS
  Company Number: US-ACADIA PHARMACEUTICALS INC.-ACA-2025-PIM-005634

PATIENT
  Sex: Female
  Weight: 51.7 kg

DRUGS (5)
  1. NUPLAZID [Suspect]
     Active Substance: PIMAVANSERIN TARTRATE
     Indication: Parkinson^s disease
     Dosage: 34 MILLIGRAM, QD
     Route: 048
     Dates: start: 202412
  2. LEVOTHYROXINE [Concomitant]
     Active Substance: LEVOTHYROXINE
  3. MORPHINE [Concomitant]
     Active Substance: MORPHINE
  4. SCOPOLAMINE [Concomitant]
     Active Substance: SCOPOLAMINE
  5. LOSARTAN [Concomitant]
     Active Substance: LOSARTAN

REACTIONS (2)
  - Asthenia [Unknown]
  - Weight decreased [Unknown]
